FAERS Safety Report 7946248-0 (Version None)
Quarter: 2011Q4

REPORT INFORMATION
  Report Type: 
  Country: None (occurrence: None)
  Receive Date: 20111129
  Receipt Date: 20111118
  Transmission Date: 20120403
  Serious: Yes (Hospitalization)
  Sender: FDA-Public Use
  Company Number: FR-NOVOPROD-339937

PATIENT

DRUGS (14)
  1. PROPRANOLOL [Concomitant]
  2. NOVORAPID [Suspect]
     Indication: PRODUCT USED FOR UNKNOWN INDICATION
     Dosage: 3 UI/DAY
     Route: 065
     Dates: start: 20110701, end: 20110704
  3. LASIX [Concomitant]
  4. OXAZEPAM [Concomitant]
  5. NOCTAMIDE [Concomitant]
  6. CALCIPARINE [Suspect]
     Indication: PRODUCT USED FOR UNKNOWN INDICATION
     Dosage: 10000 IU, QD
     Route: 058
     Dates: start: 20110627, end: 20110704
  7. MIANSERINE [Concomitant]
  8. KEPPRA [Suspect]
     Indication: PRODUCT USED FOR UNKNOWN INDICATION
     Dosage: 1 G, QD
     Route: 042
     Dates: start: 20110630, end: 20110712
  9. ACETAMINOPHEN [Suspect]
     Indication: PAIN
     Dosage: 3 G, QD
     Route: 048
     Dates: start: 20110702, end: 20110712
  10. POTASSIUM CHLORIDE [Concomitant]
  11. URBANYL [Suspect]
     Indication: STATUS EPILEPTICUS
     Dosage: 10 MG, QD
     Route: 048
     Dates: start: 20110627
  12. PANTOPRAZOLE SODIUM [Concomitant]
  13. URBANYL [Suspect]
     Dosage: 17 IU, QD
     Route: 058
     Dates: start: 20110630, end: 20110704
  14. ALDACTONE [Concomitant]

REACTIONS (3)
  - BLOOD ALKALINE PHOSPHATASE INCREASED [None]
  - CHOLESTASIS [None]
  - GAMMA-GLUTAMYLTRANSFERASE INCREASED [None]
